FAERS Safety Report 15821068 (Version 1)
Quarter: 2019Q1

REPORT INFORMATION
  Report Type: Spontaneous
  Country: US (occurrence: US)
  Receive Date: 20190114
  Receipt Date: 20190114
  Transmission Date: 20190417
  Serious: No
  Sender: FDA-Public Use
  Company Number: US-TEVA-2019-US-995006

PATIENT
  Age: 20 Year
  Sex: Female

DRUGS (1)
  1. SUCRALFATE TABLETS [Suspect]
     Active Substance: SUCRALFATE
     Indication: ULCER
     Dosage: DOSE STRENGTH:  1  UNKNONW UNITS
     Dates: start: 201809

REACTIONS (3)
  - Abdominal pain [Unknown]
  - Burning sensation [Unknown]
  - Nausea [Unknown]

NARRATIVE: CASE EVENT DATE: 201812
